FAERS Safety Report 7237973-8 (Version None)
Quarter: 2011Q1

REPORT INFORMATION
  Report Type: 
  Country: None (occurrence: None)
  Receive Date: 20110121
  Receipt Date: 20110117
  Transmission Date: 20110831
  Serious: Yes (Death, Other)
  Sender: FDA-Public Use
  Company Number: PHHY2011TW04139

PATIENT
  Age: 46 Year
  Sex: Male

DRUGS (1)
  1. ALLOPURINOL [Suspect]
     Dosage: UNK

REACTIONS (4)
  - RENAL DISORDER [None]
  - RASH [None]
  - SEPTIC SHOCK [None]
  - DRUG RASH WITH EOSINOPHILIA AND SYSTEMIC SYMPTOMS [None]
